FAERS Safety Report 7519150-6 (Version None)
Quarter: 2011Q2

REPORT INFORMATION
  Report Type: 
  Country: None (occurrence: None)
  Receive Date: 20110602
  Receipt Date: 20110524
  Transmission Date: 20111010
  Serious: Yes (Hospitalization)
  Sender: FDA-Public Use
  Company Number: JP-ROCHE-767729

PATIENT
  Sex: Male

DRUGS (4)
  1. PREDNISOLONE [Concomitant]
     Dosage: DOSAGE IS UNCERTAIN
     Route: 048
  2. PREDNISOLONE [Concomitant]
     Dosage: REDUCED DOSE
     Route: 048
  3. ACTEMRA [Suspect]
     Indication: STILL'S DISEASE ADULT ONSET
     Route: 041
     Dates: start: 20110105, end: 20110301
  4. METHOTREXATE [Concomitant]
     Dosage: DOSAGE IS UNCERTAIN
     Route: 048

REACTIONS (1)
  - ABDOMINAL PAIN [None]
